FAERS Safety Report 22155596 (Version 1)
Quarter: 2023Q1

REPORT INFORMATION
  Report Type: Spontaneous
  Country: FR (occurrence: FR)
  Receive Date: 20230330
  Receipt Date: 20230330
  Transmission Date: 20230417
  Serious: Yes (Hospitalization, Other)
  Sender: FDA-Public Use
  Company Number: FR-BIOGARAN-B23000551

PATIENT

DRUGS (26)
  1. PAROXETINE [Suspect]
     Active Substance: PAROXETINE
     Indication: Depressive symptom
     Dosage: 20 MG, QD
     Route: 065
     Dates: start: 20220423, end: 20220423
  2. PAROXETINE [Suspect]
     Active Substance: PAROXETINE
     Dosage: 40 MG, QD
     Route: 065
     Dates: start: 20220426, end: 20220610
  3. PAROXETINE [Suspect]
     Active Substance: PAROXETINE
     Dosage: 20 MG, QD
     Route: 065
     Dates: start: 20220611, end: 20220612
  4. PAROXETINE [Suspect]
     Active Substance: PAROXETINE
     Dosage: 10 MG, QD
     Route: 065
     Dates: start: 20220613, end: 20220625
  5. LAMOTRIGINE [Interacting]
     Active Substance: LAMOTRIGINE
     Indication: Impulsive behaviour
     Dosage: 25 MG, QD
     Route: 065
     Dates: start: 20220608, end: 20220622
  6. LAMOTRIGINE [Interacting]
     Active Substance: LAMOTRIGINE
     Dosage: 50 MG, QD
     Route: 065
     Dates: start: 20220623, end: 20220626
  7. LAMOTRIGINE [Interacting]
     Active Substance: LAMOTRIGINE
     Dosage: 75 MG, QD
     Route: 065
     Dates: start: 20220701, end: 20220705
  8. ARIPIPRAZOLE [Interacting]
     Active Substance: ARIPIPRAZOLE
     Indication: Impulsive behaviour
     Dosage: 5 MG, QD
     Route: 065
     Dates: start: 20220610, end: 20220611
  9. ARIPIPRAZOLE [Interacting]
     Active Substance: ARIPIPRAZOLE
     Indication: Personality disorder
     Dosage: 10 MG, QD
     Route: 065
     Dates: start: 20220612, end: 20220612
  10. ARIPIPRAZOLE [Interacting]
     Active Substance: ARIPIPRAZOLE
     Dosage: 15 MG, QD
     Route: 065
     Dates: start: 20220613, end: 20220623
  11. ARIPIPRAZOLE [Interacting]
     Active Substance: ARIPIPRAZOLE
     Dosage: 30 MG, QD
     Route: 065
     Dates: start: 20220624, end: 20220705
  12. MIRTAZAPINE [Suspect]
     Active Substance: MIRTAZAPINE
     Indication: Insomnia
     Dosage: 15 MG, QD
     Route: 065
  13. MIRTAZAPINE [Suspect]
     Active Substance: MIRTAZAPINE
     Indication: Depressive symptom
     Dosage: 7.5 MG, QD
     Route: 065
     Dates: start: 20220610, end: 20220611
  14. MIRTAZAPINE [Suspect]
     Active Substance: MIRTAZAPINE
     Dosage: 15 MG, QD
     Route: 065
     Dates: start: 20220612, end: 20220622
  15. MIRTAZAPINE [Suspect]
     Active Substance: MIRTAZAPINE
     Dosage: 30 MG, QD
     Route: 065
     Dates: start: 20220623, end: 20220624
  16. OLANZAPINE [Suspect]
     Active Substance: OLANZAPINE
     Indication: Product used for unknown indication
     Dosage: 10 MG, QD
     Route: 065
  17. OLANZAPINE [Suspect]
     Active Substance: OLANZAPINE
     Dosage: 10 MG, QD
     Route: 065
     Dates: start: 20220706, end: 20220706
  18. OLANZAPINE [Suspect]
     Active Substance: OLANZAPINE
     Dosage: 20 MG, QD
     Route: 065
     Dates: start: 20220727, end: 20220826
  19. QUETIAPINE [Suspect]
     Active Substance: QUETIAPINE
     Indication: Product used for unknown indication
     Dosage: 400 MG, QD
     Route: 065
  20. QUETIAPINE [Suspect]
     Active Substance: QUETIAPINE
     Dosage: 400 MG, QD
     Route: 065
     Dates: start: 20220422, end: 20220426
  21. QUETIAPINE [Suspect]
     Active Substance: QUETIAPINE
     Dosage: 300 MG, QD
     Route: 065
     Dates: start: 20220528, end: 20220528
  22. AMISULPRIDE [Suspect]
     Active Substance: AMISULPRIDE
     Indication: Product used for unknown indication
     Dosage: 50 MG, QD
     Route: 065
  23. AMISULPRIDE [Suspect]
     Active Substance: AMISULPRIDE
     Dosage: 50 MG, QD
     Route: 065
     Dates: start: 20220422, end: 20220422
  24. ZOPICLONE [Interacting]
     Active Substance: ZOPICLONE
     Indication: Sedation
     Dosage: 7.5 MG, QD
     Route: 065
     Dates: start: 20220422
  25. CYAMEMAZINE [Suspect]
     Active Substance: CYAMEMAZINE
     Indication: Sedation
     Dosage: 150 MG, QD
     Route: 065
     Dates: start: 20220422
  26. DIAZEPAM [Interacting]
     Active Substance: DIAZEPAM
     Indication: Sedation
     Dosage: 30 MG, QD
     Route: 065
     Dates: start: 20220422

REACTIONS (9)
  - Suicidal ideation [Recovered/Resolved]
  - Depressive symptom [Recovered/Resolved]
  - Hallucination, visual [Recovered/Resolved]
  - Dystonia [Unknown]
  - Confusional state [Recovered/Resolved]
  - Delusion [Recovered/Resolved]
  - Weight increased [Unknown]
  - Drug ineffective [Unknown]
  - Drug interaction [Unknown]
